FAERS Safety Report 7197482-1 (Version None)
Quarter: 2010Q4

REPORT INFORMATION
  Report Type: 
  Country: None (occurrence: None)
  Receive Date: 20101208
  Receipt Date: 20101129
  Transmission Date: 20110411
  Serious: Yes (Other)
  Sender: FDA-Public Use
  Company Number: 2010SP062334

PATIENT
  Age: 34 Year
  Sex: Female

DRUGS (4)
  1. IMPLANON [Suspect]
     Indication: CONTRACEPTION
     Dosage: 68 MG; SBDE
     Route: 059
     Dates: start: 20100804
  2. ARTHROTEC [Concomitant]
  3. ULTRAM [Concomitant]
  4. NIFEDIPINE [Concomitant]

REACTIONS (6)
  - ARTHRALGIA [None]
  - ARTHRITIS [None]
  - BURNING SENSATION [None]
  - ERYTHEMA [None]
  - INFLUENZA LIKE ILLNESS [None]
  - RAYNAUD'S PHENOMENON [None]
